FAERS Safety Report 21067566 (Version 1)
Quarter: 2022Q3

REPORT INFORMATION
  Report Type: Spontaneous
  Country: NL (occurrence: NL)
  Receive Date: 20220712
  Receipt Date: 20220712
  Transmission Date: 20221027
  Serious: Yes (Other)
  Sender: FDA-Public Use
  Company Number: NL-009507513-2207NLD001776

PATIENT
  Age: 73 Year
  Sex: Male

DRUGS (4)
  1. PEMBROLIZUMAB [Suspect]
     Active Substance: PEMBROLIZUMAB
     Indication: Non-small cell lung cancer
     Dosage: UNK
  2. PEMBROLIZUMAB [Suspect]
     Active Substance: PEMBROLIZUMAB
     Dosage: UNK DOSAGE FORM, CYCLICAL
     Dates: start: 20190121
  3. PEMBROLIZUMAB [Suspect]
     Active Substance: PEMBROLIZUMAB
     Dosage: UNK DOSAGE FORM, CYCLICAL
     Dates: start: 20190325
  4. PEMBROLIZUMAB [Suspect]
     Active Substance: PEMBROLIZUMAB
     Dosage: UNK DOSAGE FORM, CYCLICAL
     Dates: start: 20190617

REACTIONS (4)
  - Immune-mediated thyroiditis [Unknown]
  - Immune-mediated hepatitis [Unknown]
  - Immune-mediated arthritis [Unknown]
  - Immune-mediated dermatitis [Unknown]

NARRATIVE: CASE EVENT DATE: 20190101
